FAERS Safety Report 21827089 (Version 1)
Quarter: 2023Q1

REPORT INFORMATION
  Report Type: Spontaneous
  Country: FR (occurrence: FR)
  Receive Date: 20230106
  Receipt Date: 20230106
  Transmission Date: 20230418
  Serious: Yes (Hospitalization, Other)
  Sender: FDA-Public Use
  Company Number: FR-AFSSAPS-PO20222008

PATIENT
  Age: 89 Year
  Sex: Male
  Weight: 73 kg

DRUGS (2)
  1. AMOXICILLIN [Suspect]
     Active Substance: AMOXICILLIN
     Indication: Herpes zoster meningoencephalitis
     Dosage: 12 GRAM, ONCE A DAY
     Route: 065
     Dates: start: 20221113, end: 20221113
  2. ACYCLOVIR [Suspect]
     Active Substance: ACYCLOVIR
     Indication: Herpes zoster meningoencephalitis
     Dosage: 15 MILLIGRAM/KILOGRAM
     Route: 042
     Dates: start: 20221114, end: 20221117

REACTIONS (2)
  - Toxic encephalopathy [Recovered/Resolved]
  - Acute kidney injury [Recovered/Resolved]

NARRATIVE: CASE EVENT DATE: 20221116
